FAERS Safety Report 4875641-8 (Version None)
Quarter: 2005Q4

REPORT INFORMATION
  Report Type: 
  Country: None (occurrence: None)
  Receive Date: 20051223
  Receipt Date: 20051109
  Transmission Date: 20060501
  Serious: No
  Sender: FDA-Public Use
  Company Number: 05P-163-0308044-00

PATIENT
  Age: 76 Year
  Sex: Female
  Weight: 54.4316 kg

DRUGS (9)
  1. HUMIRA [Suspect]
     Dosage: 40 MG, SUBCUTANEOUS
     Route: 058
     Dates: start: 20041015, end: 20050621
  2. METHOTREXATE [Suspect]
     Dosage: 15 MG, 1 IN 1 WK, PER ORAL
     Route: 048
     Dates: start: 19960101, end: 20050621
  3. PANTOPRAZOLE [Concomitant]
  4. PREDNISONE [Concomitant]
  5. PROCHLORPER [Concomitant]
  6. OXYCODONE [Concomitant]
  7. ZOLPIDEM TARTRATE [Concomitant]
  8. EMEND [Concomitant]
  9. FORTEO [Concomitant]

REACTIONS (2)
  - LYMPHOMA [None]
  - OEDEMA PERIPHERAL [None]
